FAERS Safety Report 7445334-1 (Version None)
Quarter: 2011Q2

REPORT INFORMATION
  Report Type: 
  Country: None (occurrence: None)
  Receive Date: 20110429
  Receipt Date: 20100916
  Transmission Date: 20111010
  Serious: Yes (Disabling)
  Sender: FDA-Public Use
  Company Number: A0881493A

PATIENT
  Age: 57 Year
  Sex: Female
  Weight: 106.8 kg

DRUGS (6)
  1. ZANTAC [Concomitant]
     Route: 042
     Dates: start: 20100908, end: 20100910
  2. MULTI-VITAMIN [Concomitant]
     Indication: DEHYDRATION
     Route: 042
     Dates: start: 20100908
  3. ZOFRAN [Suspect]
     Indication: NAUSEA
     Dosage: 4MG PER DAY
     Route: 042
     Dates: start: 20100908, end: 20100909
  4. LACTATED RINGER'S [Concomitant]
     Indication: DEHYDRATION
     Route: 042
     Dates: start: 20100908, end: 20100910
  5. INSULIN [Concomitant]
     Dosage: 10UNIT AS REQUIRED
     Route: 058
     Dates: start: 20100908, end: 20100910
  6. VITAMIN B-12 [Concomitant]
     Indication: DEHYDRATION
     Route: 042
     Dates: start: 20100908

REACTIONS (2)
  - VISION BLURRED [None]
  - VISUAL IMPAIRMENT [None]
